FAERS Safety Report 5225564-X (Version None)
Quarter: 2007Q1

REPORT INFORMATION
  Report Type: 
  Country: None (occurrence: None)
  Receive Date: 20070131
  Receipt Date: 20070123
  Transmission Date: 20070707
  Serious: Yes (Other)
  Sender: FDA-Public Use
  Company Number: US-PFIZER INC-2007007064

PATIENT
  Sex: Female
  Weight: 65.8 kg

DRUGS (11)
  1. CELEBREX [Suspect]
     Indication: ARTHRITIS
  2. INDAPAMIDE [Concomitant]
  3. PREMARIN [Concomitant]
  4. LIPITOR [Concomitant]
  5. DETROL [Concomitant]
  6. LAMISIL [Concomitant]
  7. TRUSOPT [Concomitant]
  8. LUMIGAN [Concomitant]
  9. ACETYLSALICYLIC ACID [Concomitant]
  10. ACETAMINOPHEN [Concomitant]
  11. MAGNESIUM [Concomitant]

REACTIONS (5)
  - HYPERSENSITIVITY [None]
  - LIP SWELLING [None]
  - MUSCLE SPASMS [None]
  - OEDEMA PERIPHERAL [None]
  - PRURITUS [None]
